FAERS Safety Report 7424525-X (Version None)
Quarter: 2011Q2

REPORT INFORMATION
  Report Type: 
  Country: None (occurrence: None)
  Receive Date: 20110419
  Receipt Date: 20110112
  Transmission Date: 20111010
  Serious: No
  Sender: FDA-Public Use
  Company Number: US-MUTUAL PHARMACEUTICAL COMPANY, INC.-DXCY20110001

PATIENT
  Sex: Female
  Weight: 72.64 kg

DRUGS (4)
  1. ALBUTEROL [Concomitant]
  2. DOXYCYCLINE [Suspect]
     Route: 048
     Dates: start: 20070101
  3. DOXYCYCLINE [Suspect]
  4. DYAZIDE 25 MG/37.5 MG [Concomitant]
     Route: 048

REACTIONS (2)
  - DENTAL PLAQUE [None]
  - TOOTH DISCOLOURATION [None]
